FAERS Safety Report 5250244-4 (Version None)
Quarter: 2007Q1

REPORT INFORMATION
  Report Type: 
  Country: None (occurrence: None)
  Receive Date: 20070228
  Receipt Date: 20060403
  Transmission Date: 20070707
  Serious: Yes (Other)
  Sender: FDA-Public Use
  Company Number: US-GLAXOSMITHKLINE-A0596322A

PATIENT
  Age: 60 Year
  Sex: Female

DRUGS (5)
  1. LAMICTAL [Suspect]
     Indication: BIPOLAR DISORDER
     Dosage: 50MG PER DAY
     Route: 048
     Dates: start: 20060217
  2. LEVOXYL [Concomitant]
  3. LIPITOR [Concomitant]
  4. ACTONEL [Concomitant]
  5. IBUPROFEN [Concomitant]

REACTIONS (9)
  - DRUG INEFFECTIVE [None]
  - ELEVATED MOOD [None]
  - ENERGY INCREASED [None]
  - ERYTHEMA [None]
  - HYPOMANIA [None]
  - PRURITUS [None]
  - RASH [None]
  - RASH MACULAR [None]
  - SLEEP DISORDER [None]
